FAERS Safety Report 4418610-4 (Version None)
Quarter: 2004Q3

REPORT INFORMATION
  Report Type: 
  Country: None (occurrence: None)
  Receive Date: 20040805
  Receipt Date: 20040722
  Transmission Date: 20050211
  Serious: Yes (Hospitalization)
  Sender: FDA-Public Use
  Company Number: 2004UW15516

PATIENT
  Age: 77 Year
  Sex: Male
  Weight: 102.0593 kg

DRUGS (15)
  1. CRESTOR [Suspect]
     Indication: BLOOD CHOLESTEROL INCREASED
     Dosage: 10 MG DAILY PO
     Route: 048
     Dates: start: 20040401, end: 20040701
  2. TRICOR [Suspect]
     Dates: start: 20030901
  3. LASIX [Concomitant]
  4. HUMALOG [Concomitant]
  5. K-DUR 10 [Concomitant]
  6. LANOXIN [Concomitant]
  7. ZOLOFT [Concomitant]
  8. COLCHICINE [Concomitant]
  9. NORVASC [Concomitant]
  10. IMDUR [Concomitant]
  11. ACTOS [Concomitant]
  12. ALLOPURINOL [Concomitant]
  13. VASOTEC [Concomitant]
  14. COREG [Concomitant]
  15. LIPITOR [Concomitant]

REACTIONS (2)
  - GASTROENTERITIS VIRAL [None]
  - MYOPATHY [None]
